FAERS Safety Report 13345476 (Version 1)
Quarter: 2017Q1

REPORT INFORMATION
  Report Type: Spontaneous
  Country: US (occurrence: US)
  Receive Date: 20170317
  Receipt Date: 20170317
  Transmission Date: 20170428
  Serious: No
  Sender: FDA-Public Use
  Company Number: US-LUPIN PHARMACEUTICALS INC.-2016-02016

PATIENT
  Age: 88 Year
  Sex: Female

DRUGS (1)
  1. SUPRAX [Suspect]
     Active Substance: CEFIXIME
     Indication: URINARY TRACT INFECTION
     Dosage: UNK UNK,UNK,UNKNOWN
     Route: 065

REACTIONS (6)
  - Insomnia [Unknown]
  - Pollakiuria [Unknown]
  - Blood creatinine increased [Unknown]
  - Constipation [Unknown]
  - Abdominal discomfort [Unknown]
  - Hypertension [Unknown]
